FAERS Safety Report 5047149-0 (Version None)
Quarter: 2006Q3

REPORT INFORMATION
  Report Type: 
  Country: None (occurrence: None)
  Receive Date: 20060703
  Receipt Date: 20060622
  Transmission Date: 20061208
  Serious: Yes (Other)
  Sender: FDA-Public Use
  Company Number: 111149ISR

PATIENT
  Age: 71 Year
  Sex: Male

DRUGS (7)
  1. METFORMIN [Suspect]
     Dosage: 1000 MILLIGRAM ORAL
     Route: 048
     Dates: start: 20060126, end: 20060605
  2. ATENOLOL [Concomitant]
  3. FOSINOPRIL SODIUM [Concomitant]
  4. GLICLAZIDE [Concomitant]
  5. ISOSORBIDE MONONITRATE [Concomitant]
  6. ASPIRIN [Concomitant]
  7. TAMSULOSIN HYDROCHLORIDE [Concomitant]

REACTIONS (1)
  - HEPATITIS ACUTE [None]
